FAERS Safety Report 8027451-0 (Version None)
Quarter: 2012Q1

REPORT INFORMATION
  Report Type: 
  Country: None (occurrence: None)
  Receive Date: 20120106
  Receipt Date: 20111228
  Transmission Date: 20120608
  Serious: Yes (Hospitalization)
  Sender: FDA-Public Use
  Company Number: CA-JNJFOC-20120100631

PATIENT
  Sex: Male
  Weight: 111 kg

DRUGS (35)
  1. PREDNISONE TAB [Suspect]
     Route: 048
     Dates: start: 20111006
  2. TEVA NAPROXEN [Concomitant]
     Indication: ANTIINFLAMMATORY THERAPY
     Route: 065
     Dates: start: 20110804
  3. FLOMAX [Concomitant]
     Indication: PROSTATIC DISORDER
     Route: 065
     Dates: start: 20110925
  4. ATORVASTATIN [Concomitant]
     Indication: PRODUCT USED FOR UNKNOWN INDICATION
     Route: 065
     Dates: start: 20110902
  5. MICARDIS [Concomitant]
     Indication: PRODUCT USED FOR UNKNOWN INDICATION
     Route: 065
     Dates: start: 20110812
  6. FUROSEMIDE [Concomitant]
     Indication: DIURETIC THERAPY
     Route: 065
  7. PMS-HYDROMORPHONE [Concomitant]
     Indication: PRODUCT USED FOR UNKNOWN INDICATION
     Route: 065
     Dates: start: 20110818
  8. CYCLOBENZAPRINE [Concomitant]
     Indication: PRODUCT USED FOR UNKNOWN INDICATION
     Route: 065
  9. DIAMICRON [Concomitant]
     Indication: DIABETES MELLITUS
     Route: 065
     Dates: start: 20110925
  10. ATIVAN [Concomitant]
     Indication: INSOMNIA
     Route: 065
     Dates: start: 20110923
  11. CANESTEN HC [Concomitant]
     Indication: PRODUCT USED FOR UNKNOWN INDICATION
     Route: 065
     Dates: start: 20110919
  12. METFORMIN SANDOZ [Concomitant]
     Indication: DIABETES MELLITUS
     Route: 065
     Dates: start: 20110902
  13. MAGNESIUM [Concomitant]
     Indication: PRODUCT USED FOR UNKNOWN INDICATION
     Route: 065
     Dates: start: 20110902
  14. ASAPHEN [Concomitant]
     Indication: PRODUCT USED FOR UNKNOWN INDICATION
     Route: 065
     Dates: start: 20110902
  15. ACETAMINOPHEN [Concomitant]
     Indication: PRODUCT USED FOR UNKNOWN INDICATION
     Route: 065
  16. HEPARIN SODIUM [Concomitant]
     Indication: PRODUCT USED FOR UNKNOWN INDICATION
     Route: 050
     Dates: start: 20110905
  17. PREDNISONE TAB [Suspect]
     Indication: PROSTATE CANCER METASTATIC
     Route: 048
     Dates: start: 20110925
  18. NEXIUM [Concomitant]
     Indication: PRODUCT USED FOR UNKNOWN INDICATION
     Route: 065
     Dates: start: 20110925
  19. DOCUSATE SODIUM [Concomitant]
     Indication: CONSTIPATION
     Route: 065
     Dates: start: 20110804
  20. TEMAZEPAM [Concomitant]
     Indication: INSOMNIA
     Route: 065
  21. AMILORIDE HYDROCHLORIDE [Concomitant]
     Indication: HYDRONEPHROSIS
     Route: 048
  22. ARISTOCORT R [Concomitant]
     Indication: PRODUCT USED FOR UNKNOWN INDICATION
     Route: 061
  23. ABIRATERONE ACETATE [Suspect]
     Route: 048
  24. CALCIUM AND VITAMIN D [Concomitant]
     Indication: PRODUCT USED FOR UNKNOWN INDICATION
     Dosage: 500 MG/400 IU
     Route: 065
     Dates: start: 20110902
  25. VITAMIN D [Concomitant]
     Indication: PRODUCT USED FOR UNKNOWN INDICATION
     Route: 065
  26. DITROPAN [Concomitant]
     Indication: PRODUCT USED FOR UNKNOWN INDICATION
     Route: 065
  27. ATIVAN [Concomitant]
     Indication: ANXIETY
     Route: 065
     Dates: start: 20110923
  28. PALAFER [Concomitant]
     Indication: PRODUCT USED FOR UNKNOWN INDICATION
     Route: 065
     Dates: start: 20110919
  29. OXYBUTYNIN [Concomitant]
     Indication: PRODUCT USED FOR UNKNOWN INDICATION
     Route: 065
     Dates: start: 20111113
  30. GLAXAL BASE [Concomitant]
     Indication: PRODUCT USED FOR UNKNOWN INDICATION
     Route: 061
     Dates: start: 20110816
  31. AMILORIDE HYDROCHLORIDE [Concomitant]
     Indication: DIURETIC THERAPY
     Route: 048
  32. ABIRATERONE ACETATE [Suspect]
     Indication: PROSTATE CANCER METASTATIC
     Route: 048
     Dates: start: 20111006, end: 20111201
  33. DOMPERIDONE [Concomitant]
     Indication: PRODUCT USED FOR UNKNOWN INDICATION
     Route: 065
     Dates: start: 20110910
  34. ELIGARD [Concomitant]
     Indication: PRODUCT USED FOR UNKNOWN INDICATION
     Route: 065
     Dates: start: 20110826
  35. FLUCONAZOLE [Concomitant]
     Indication: ANTIFUNGAL PROPHYLAXIS
     Route: 065

REACTIONS (1)
  - BLOOD CREATININE INCREASED [None]
